FAERS Safety Report 23586367 (Version 1)
Quarter: 2024Q1

REPORT INFORMATION
  Report Type: Spontaneous
  Country: US (occurrence: US)
  Receive Date: 20240301
  Receipt Date: 20240301
  Transmission Date: 20240410
  Serious: Yes (Hospitalization)
  Sender: FDA-Public Use
  Company Number: US-VERTEX PHARMACEUTICALS-2023-013357

PATIENT
  Sex: Female
  Weight: 59 kg

DRUGS (13)
  1. TRIKAFTA [Suspect]
     Active Substance: ELEXACAFTOR\IVACAFTOR\TEZACAFTOR
     Indication: Cystic fibrosis
     Dosage: TWO TABS IN AM AND ONE TAB IN PM
     Route: 048
     Dates: start: 20210818
  2. ARIPIPRAZOLE [Concomitant]
     Active Substance: ARIPIPRAZOLE
  3. BUPROPION [Concomitant]
     Active Substance: BUPROPION
     Dosage: HCL TAB 300 MG XL
  4. CAYSTON [Concomitant]
     Active Substance: AZTREONAM
  5. CREON [Concomitant]
     Active Substance: PANCRELIPASE AMYLASE\PANCRELIPASE LIPASE\PANCRELIPASE PROTEASE
     Dosage: 24000 UNIT CAPSULE
  6. FLUTICASONE [Concomitant]
     Active Substance: FLUTICASONE
  7. LORAZEPAM [Concomitant]
     Active Substance: LORAZEPAM
  8. MEFLOQUINE [Concomitant]
     Active Substance: MEFLOQUINE
  9. OMEPRAZOLE [Concomitant]
     Active Substance: OMEPRAZOLE
  10. PROAIR HFA [Concomitant]
     Active Substance: ALBUTEROL SULFATE
  11. PULMOZYME [Concomitant]
     Active Substance: DORNASE ALFA
     Dosage: 1MG/ML SOLUTION
  12. SODIUM CHLORIDE [Concomitant]
     Active Substance: SODIUM CHLORIDE
     Route: 055
  13. TOBRAMYCIN [Concomitant]
     Active Substance: TOBRAMYCIN
     Dosage: 300/4ML
     Route: 055

REACTIONS (2)
  - Surgery [Unknown]
  - Exposure during pregnancy [Unknown]
